FAERS Safety Report 4293570-8 (Version None)
Quarter: 2004Q1

REPORT INFORMATION
  Report Type: 
  Country: None (occurrence: None)
  Receive Date: 20040126
  Receipt Date: 20030828
  Transmission Date: 20041129
  Serious: No
  Sender: FDA-Public Use
  Company Number: USA030845740

PATIENT
  Sex: Female

DRUGS (1)
  1. FORTEO [Suspect]
     Dates: start: 20030822

REACTIONS (3)
  - ABDOMINAL PAIN UPPER [None]
  - MUSCLE CRAMP [None]
  - MUSCULAR WEAKNESS [None]
